FAERS Safety Report 12200957 (Version 3)
Quarter: 2016Q1

REPORT INFORMATION
  Report Type: Spontaneous
  Country: US (occurrence: US)
  Receive Date: 20160322
  Receipt Date: 20160328
  Transmission Date: 20160526
  Serious: Yes (Hospitalization, Other)
  Sender: FDA-Public Use
  Company Number: US-JNJFOC-20160227112

PATIENT
  Sex: Female

DRUGS (5)
  1. REMICADE [Suspect]
     Active Substance: INFLIXIMAB
     Indication: RHEUMATOID ARTHRITIS
     Route: 042
     Dates: start: 20160217
  2. BENADRYL [Suspect]
     Active Substance: DIPHENHYDRAMINE HYDROCHLORIDE
     Indication: PREMEDICATION
     Route: 042
  3. REMICADE [Suspect]
     Active Substance: INFLIXIMAB
     Indication: RHEUMATOID ARTHRITIS
     Route: 042
     Dates: start: 20160301
  4. ADVAIR HFA [Suspect]
     Active Substance: FLUTICASONE PROPIONATE\SALMETEROL XINAFOATE
     Indication: PRODUCT USED FOR UNKNOWN INDICATION
     Route: 065
  5. KLONOPIN [Concomitant]
     Active Substance: CLONAZEPAM
     Route: 065

REACTIONS (27)
  - Nervousness [Unknown]
  - Lethargy [Unknown]
  - White blood cell count increased [Unknown]
  - Abdominal discomfort [Unknown]
  - Fatigue [Not Recovered/Not Resolved]
  - Feeling drunk [Unknown]
  - Diarrhoea [Unknown]
  - Influenza like illness [Unknown]
  - Malaise [Not Recovered/Not Resolved]
  - Erythema [Not Recovered/Not Resolved]
  - Pain of skin [Not Recovered/Not Resolved]
  - Chills [Recovered/Resolved]
  - Oral infection [Unknown]
  - Dizziness [Unknown]
  - Hiccups [Not Recovered/Not Resolved]
  - Faecaloma [Not Recovered/Not Resolved]
  - Pallor [Unknown]
  - Feeling abnormal [Not Recovered/Not Resolved]
  - Hospitalisation [Unknown]
  - Infusion related reaction [Unknown]
  - Vomiting [Unknown]
  - Toothache [Unknown]
  - Disability [Unknown]
  - Drug ineffective [Unknown]
  - Presyncope [Unknown]
  - Aphasia [Recovered/Resolved]
  - Hypotension [Unknown]

NARRATIVE: CASE EVENT DATE: 2016
